FAERS Safety Report 4650352-2 (Version None)
Quarter: 2005Q2

REPORT INFORMATION
  Report Type: 
  Country: None (occurrence: None)
  Receive Date: 20050429
  Receipt Date: 20050420
  Transmission Date: 20051028
  Serious: No
  Sender: FDA-Public Use
  Company Number: 2005CG00692

PATIENT
  Age: 57 Year
  Sex: Female
  Weight: 90 kg

DRUGS (5)
  1. NEXIUM [Suspect]
     Indication: ABDOMINAL PAIN UPPER
     Dosage: 20 MG QD PO
     Route: 048
     Dates: start: 20040428, end: 20040505
  2. NEXIUM [Suspect]
     Indication: PROPHYLAXIS AGAINST GASTROINTESTINAL ULCER
     Dosage: 20 MG QD PO
     Route: 048
     Dates: start: 20040428, end: 20040505
  3. NEXIUM [Suspect]
     Indication: ABDOMINAL PAIN UPPER
     Dosage: 20 MG QD PO
     Route: 048
     Dates: start: 20040519, end: 20040519
  4. NEXIUM [Suspect]
     Indication: PROPHYLAXIS AGAINST GASTROINTESTINAL ULCER
     Dosage: 20 MG QD PO
     Route: 048
     Dates: start: 20040519, end: 20040519
  5. BI-PROFENID [Concomitant]

REACTIONS (6)
  - ABDOMINAL PAIN UPPER [None]
  - DERMATITIS BULLOUS [None]
  - EPIDERMOLYSIS [None]
  - LEUKOCYTOCLASTIC VASCULITIS [None]
  - SKIN NECROSIS [None]
  - TOXIC SKIN ERUPTION [None]
